FAERS Safety Report 7840734-X (Version None)
Quarter: 2011Q4

REPORT INFORMATION
  Report Type: 
  Country: None (occurrence: None)
  Receive Date: 20111021
  Receipt Date: 20111021
  Transmission Date: 20120403
  Serious: No
  Sender: FDA-Public Use
  Company Number: None

PATIENT
  Sex: Male
  Weight: 97.7 kg

DRUGS (2)
  1. LEUPROLIDE ACETATE [Suspect]
     Dosage: 22 MG
  2. TAXOTERE [Suspect]
     Dosage: 167.3 MG

REACTIONS (3)
  - TOXICITY TO VARIOUS AGENTS [None]
  - CONDITION AGGRAVATED [None]
  - ANGINA PECTORIS [None]
